FAERS Safety Report 9401827 (Version 1)
Quarter: 2013Q3

REPORT INFORMATION
  Report Type: Spontaneous
  Country: FR (occurrence: FR)
  Receive Date: 20130716
  Receipt Date: 20130716
  Transmission Date: 20140515
  Serious: Yes (Hospitalization)
  Sender: FDA-Public Use
  Company Number: FR-JNJFOC-20130613320

PATIENT
  Sex: Male
  Weight: 102 kg

DRUGS (2)
  1. XEPLION [Suspect]
     Indication: PSYCHOTIC DISORDER
     Route: 030
     Dates: start: 20130430, end: 20130528
  2. RISPERDAL [Concomitant]
     Indication: PSYCHOTIC DISORDER
     Route: 048
     Dates: start: 2008

REACTIONS (4)
  - Delirium [Unknown]
  - Euphoric mood [Unknown]
  - Anxiety [Unknown]
  - Drug effect decreased [Unknown]
